FAERS Safety Report 8690805 (Version 2)
Quarter: 2013Q4

REPORT INFORMATION
  Report Type: Spontaneous
  Country: US (occurrence: US)
  Receive Date: 20120728
  Receipt Date: 20131101
  Transmission Date: 20140711
  Serious: No
  Sender: FDA-Public Use
  Company Number: US-009507513-1207USA008460

PATIENT
  Age: 60 Year
  Sex: Male

DRUGS (2)
  1. SAPHRIS [Suspect]
  2. DEPAKOTE [Concomitant]

REACTIONS (1)
  - Parkinsonian rest tremor [Unknown]
